FAERS Safety Report 17139214 (Version 2)
Quarter: 2021Q4

REPORT INFORMATION
  Report Type: Report from Study
  Country: US (occurrence: US)
  Receive Date: 20191211
  Receipt Date: 20211118
  Transmission Date: 20220303
  Serious: No
  Sender: FDA-Public Use
  Company Number: US-NOVARTISTESTPH-NVSC2019US063084

PATIENT
  Age: 5 Year
  Sex: Female
  Weight: 16.3 kg

DRUGS (2)
  1. PIQRAY [Suspect]
     Active Substance: ALPELISIB
     Indication: PIK3CA related overgrowth spectrum
     Dosage: 50 MG
     Route: 048
     Dates: start: 20190830
  2. LOPERAMIDE [Concomitant]
     Active Substance: LOPERAMIDE
     Indication: Product used for unknown indication
     Dosage: (2MG WITH FIRST LOOSE STOOL, 1MG AFTER EACH SUBSEQUENT LOOSE STOOL)
     Route: 065
     Dates: start: 20210629

REACTIONS (7)
  - Pain in extremity [Recovered/Resolved]
  - Abdominal pain [Recovered/Resolved]
  - Mass [Not Recovered/Not Resolved]
  - Headache [Recovered/Resolved]
  - Pyrexia [Recovered/Resolved]
  - Vomiting [Recovered/Resolved]
  - Nausea [Recovered/Resolved]

NARRATIVE: CASE EVENT DATE: 20191025
